FAERS Safety Report 9121820 (Version 1)
Quarter: 2012Q4

REPORT INFORMATION
  Report Type: Spontaneous
  Country: US (occurrence: None)
  Receive Date: 20121026
  Receipt Date: 20121026
  Transmission Date: 20130627
  Serious: No
  Sender: FDA-Public Use
  Company Number: 2012US-004327

PATIENT
  Age: 51 Year
  Sex: Female
  Weight: 55 kg

DRUGS (6)
  1. OMONTYS (PEGINESATIDE) SOLUTION FOR INJECTION [Suspect]
     Indication: NEPHROGENIC ANAEMIA
     Route: 042
     Dates: start: 20120929, end: 20120929
  2. OMONTYS (PEGINESATIDE) SOLUTION FOR INJECTION [Suspect]
     Indication: RED CELL APLASIA
     Route: 042
     Dates: start: 20120929, end: 20120929
  3. OMONTYS (PEGINESATIDE) SOLUTION FOR INJECTION [Suspect]
     Indication: NEPHROGENIC ANAEMIA
     Route: 042
     Dates: start: 20120828, end: 20120828
  4. OMONTYS (PEGINESATIDE) SOLUTION FOR INJECTION [Suspect]
     Indication: RED CELL APLASIA
     Route: 042
     Dates: start: 20120828, end: 20120828
  5. OMONTYS (PEGINESATIDE) SOLUTION FOR INJECTION [Suspect]
     Indication: NEPHROGENIC ANAEMIA
     Route: 042
     Dates: start: 20120726, end: 20120726
  6. OMONTYS (PEGINESATIDE) SOLUTION FOR INJECTION [Suspect]
     Indication: RED CELL APLASIA
     Route: 042
     Dates: start: 20120726, end: 20120726

REACTIONS (1)
  - Haemoglobin decreased [None]
